FAERS Safety Report 10108264 (Version 1)
Quarter: 2014Q2

REPORT INFORMATION
  Report Type: Spontaneous
  Country: US (occurrence: US)
  Receive Date: 20140425
  Receipt Date: 20140425
  Transmission Date: 20141212
  Serious: Yes (Other)
  Sender: FDA-Public Use
  Company Number: US-PFIZER INC-2014110459

PATIENT
  Age: 52 Year
  Sex: Female
  Weight: 113.38 kg

DRUGS (11)
  1. OXYCODONE HYDROCHLORIDE [Suspect]
     Indication: PAIN
     Dosage: UNK
     Dates: start: 201311
  2. PREDNISONE [Suspect]
     Indication: PAIN
     Dosage: UNK
     Dates: end: 20140121
  3. LYRICA [Suspect]
     Indication: PAIN
     Dosage: 50 MG, 3X/DAY
     Route: 048
     Dates: start: 201402
  4. TRAMADOL HCL [Suspect]
     Indication: PAIN
     Dosage: UNK
     Dates: start: 201311
  5. HYDROCODONE [Suspect]
     Indication: PAIN
     Dosage: UNK
     Dates: start: 201311
  6. TYLENOL [Suspect]
     Indication: PAIN
     Dosage: 4X/DAY
     Dates: start: 201311
  7. NEXIUM [Concomitant]
     Dosage: 40 MG, 1X/DAY
  8. LISINOPRIL [Concomitant]
     Dosage: 20 MG, 2X/DAY
  9. APRISO [Concomitant]
     Dosage: 1.125 MG (BY TAKING THREE 0.375G ORAL CAPSULES IN MORNING), 1X/DAY
     Route: 048
  10. MEGARED [Concomitant]
     Dosage: UNK
  11. AMLODIPINE [Concomitant]
     Dosage: 25 MG, ALTERNATE DAY

REACTIONS (16)
  - Osteomyelitis [Unknown]
  - Gastric disorder [Unknown]
  - Arthralgia [Unknown]
  - Swelling [Unknown]
  - Pain [Unknown]
  - Gastrointestinal disorder [Unknown]
  - Vomiting [Unknown]
  - Localised infection [Unknown]
  - Memory impairment [Unknown]
  - Weight increased [Unknown]
  - Skin disorder [Unknown]
  - Peripheral swelling [Unknown]
  - Rash pruritic [Unknown]
  - Drug ineffective [Unknown]
  - Insomnia [Unknown]
  - Hypokinesia [Unknown]
